FAERS Safety Report 6017213-8 (Version None)
Quarter: 2008Q4

REPORT INFORMATION
  Report Type: 
  Country: None (occurrence: None)
  Receive Date: 20081223
  Receipt Date: 20081210
  Transmission Date: 20090506
  Serious: Yes (Other)
  Sender: FDA-Public Use
  Company Number: US-ROCHE-602780

PATIENT
  Age: 80 Year
  Sex: Male

DRUGS (3)
  1. XELODA [Suspect]
     Indication: COLON CANCER
     Dosage: RECEIVED 84 TABLETS DURING THE TWO WEEKS
     Route: 065
     Dates: start: 20080825, end: 20080908
  2. XELODA [Suspect]
     Dosage: RECEIVED 108 TABLETS, DURING THE CYCLE
     Route: 065
     Dates: start: 20080921, end: 20081004
  3. XELODA [Suspect]
     Dosage: RECEIVED 76 TABLETS
     Route: 065
     Dates: start: 20081013, end: 20081023

REACTIONS (4)
  - DIARRHOEA [None]
  - HYPOAESTHESIA [None]
  - METASTASIS [None]
  - OEDEMA PERIPHERAL [None]
